FAERS Safety Report 6417498-X (Version None)
Quarter: 2009Q4

REPORT INFORMATION
  Report Type: 
  Country: None (occurrence: None)
  Receive Date: 20091026
  Receipt Date: 20091013
  Transmission Date: 20100525
  Serious: Yes (Death)
  Sender: FDA-Public Use
  Company Number: ADR38042009

PATIENT
  Age: 52 Year
  Sex: Male

DRUGS (3)
  1. SIMVASTATIN [Suspect]
     Indication: BLOOD CHOLESTEROL INCREASED
     Dosage: ORAL USE
     Route: 048
     Dates: start: 20070401
  2. ASPIRIN [Concomitant]
  3. METFORMIN [Concomitant]

REACTIONS (11)
  - ABNORMAL DREAMS [None]
  - AMNESIA [None]
  - BLOOD ALCOHOL INCREASED [None]
  - COMPLETED SUICIDE [None]
  - CONTUSION [None]
  - EXCORIATION [None]
  - LOWER LIMB FRACTURE [None]
  - MULTIPLE INJURIES [None]
  - NIGHTMARE [None]
  - RIB FRACTURE [None]
  - SPINAL CORD INJURY CERVICAL [None]
